FAERS Safety Report 8493974-3 (Version None)
Quarter: 2012Q3

REPORT INFORMATION
  Report Type: 
  Country: None (occurrence: None)
  Receive Date: 20120709
  Receipt Date: 20120627
  Transmission Date: 20120928
  Serious: Yes (Death, Other)
  Sender: FDA-Public Use
  Company Number: AR-BIOGENIDEC-2012BI008095

PATIENT
  Age: 39 Year
  Sex: Male

DRUGS (5)
  1. TYSABRI [Suspect]
     Indication: MULTIPLE SCLEROSIS
     Route: 042
     Dates: start: 20110502, end: 20120206
  2. NATURAL VITAMINS [Concomitant]
     Dates: start: 20110803
  3. VITAMIN D [Concomitant]
     Dates: start: 20110803
  4. BENADRYL [Concomitant]
  5. PREGABALIN [Concomitant]
     Indication: PAIN
     Dates: start: 20111205

REACTIONS (4)
  - SUICIDAL IDEATION [None]
  - BIPOLAR DISORDER [None]
  - MENTAL DISORDER [None]
  - COMPLETED SUICIDE [None]
